FAERS Safety Report 4428563-0 (Version None)
Quarter: 2004Q3

REPORT INFORMATION
  Report Type: 
  Country: None (occurrence: None)
  Receive Date: 20040818
  Receipt Date: 20031223
  Transmission Date: 20050211
  Serious: No
  Sender: FDA-Public Use
  Company Number: US-BRISTOL-MYERS SQUIBB COMPANY-12463840

PATIENT
  Age: 61 Year
  Sex: Female
  Weight: 57 kg

DRUGS (1)
  1. BLEOMYCIN SULFATE [Suspect]
     Indication: OVARIAN CANCER
     Dosage: PEG TUBE
     Route: 050
     Dates: start: 20031223, end: 20031223

REACTIONS (2)
  - MEDICATION ERROR [None]
  - VOMITING [None]
